FAERS Safety Report 13483685 (Version 1)
Quarter: 2017Q2

REPORT INFORMATION
  Report Type: Spontaneous
  Country: SA (occurrence: US)
  Receive Date: 20170425
  Receipt Date: 20170425
  Transmission Date: 20170830
  Serious: Yes (Life-Threatening, Hospitalization)
  Sender: FDA-Public Use
  Company Number: None

PATIENT
  Age: 5 Year
  Sex: Female
  Weight: 15.3 kg

DRUGS (1)
  1. CYCLOSPORINE. [Suspect]
     Active Substance: CYCLOSPORINE
     Indication: STEM CELL TRANSPLANT
     Route: 042
     Dates: start: 20151228, end: 20160116

REACTIONS (5)
  - Generalised tonic-clonic seizure [None]
  - Posterior reversible encephalopathy syndrome [None]
  - Headache [None]
  - Cerebral infarction [None]
  - Vomiting [None]
